FAERS Safety Report 8788698 (Version 2)
Quarter: 2013Q1

REPORT INFORMATION
  Report Type: Spontaneous
  Country: BR (occurrence: BR)
  Receive Date: 20120917
  Receipt Date: 20130131
  Transmission Date: 20140127
  Serious: Yes (Other)
  Sender: FDA-Public Use
  Company Number: BR-AMGEN-BRASP2012056874

PATIENT
  Age: 65 Year
  Sex: Female
  Weight: 95 kg

DRUGS (7)
  1. ENBREL [Suspect]
     Indication: ANKYLOSING SPONDYLITIS
     Dosage: 25 MG, 2X/WEEK
     Route: 058
     Dates: start: 200804, end: 201205
  2. NIMESULIDE [Concomitant]
     Dosage: UNK
  3. MESALAZINE [Concomitant]
     Indication: DIVERTICULITIS
     Dosage: 11 TABLETS OF 400 MG, 1X/DAY
     Route: 048
  4. GARDENAL                           /00023201/ [Concomitant]
     Indication: GIARDIASIS
     Dosage: 1 TABLET OF 100 MG, 1X/DAY
     Route: 048
  5. OMEPRAZOL                          /00661201/ [Concomitant]
     Indication: REFLUX GASTRITIS
     Dosage: 1 TABLET OF 20 MG, 1X/DAY
     Route: 048
  6. GLIFAGE [Concomitant]
     Dosage: (STRENGTH 500) AT 2 TABLETS 2X/DAY
     Route: 048
  7. VERPAMIL [Concomitant]
     Dosage: 2 TABLETS OF 80 MG, 2X/DAY
     Route: 048

REACTIONS (3)
  - Arthralgia [Not Recovered/Not Resolved]
  - Oedema [Not Recovered/Not Resolved]
  - Urinary tract infection [Recovering/Resolving]
